FAERS Safety Report 8577176 (Version 4)
Quarter: 2013Q2

REPORT INFORMATION
  Report Type: Spontaneous
  Country: US (occurrence: US)
  Receive Date: 20120524
  Receipt Date: 20130529
  Transmission Date: 20140414
  Serious: Yes (Other)
  Sender: FDA-Public Use
  Company Number: US-PFIZER INC-2012122523

PATIENT
  Age: 86 Year
  Sex: Female
  Weight: 92.51 kg

DRUGS (11)
  1. PREMARIN [Suspect]
     Indication: HORMONE LEVEL ABNORMAL
     Dosage: 0.45 MG, 1X/DAY
     Route: 048
  2. PROTONIX [Suspect]
     Dosage: 40 MG, 1X/DAY
     Route: 048
  3. LIPITOR [Suspect]
     Dosage: 40 MG, 1X/DAY
     Route: 048
  4. ASPIRIN [Concomitant]
     Dosage: LOWEST DOSE, 1X/DAY
  5. NITROFURANTOIN [Concomitant]
     Dosage: 50 MG, UNK
  6. PAROXETINE [Concomitant]
     Dosage: 20 MG, 1X/DAY
  7. DIAZEPAM [Concomitant]
     Indication: FEELING OF RELAXATION
     Dosage: UNK
  8. VALIUM [Concomitant]
     Indication: INSOMNIA
     Dosage: 10 MG, AS NEEDED
  9. CHLORCON [Concomitant]
     Dosage: UNK
  10. LEVOXYL [Concomitant]
     Dosage: 88 UG, UNK
  11. LASIX [Concomitant]
     Dosage: 40 MG, UNK

REACTIONS (6)
  - Rib fracture [Unknown]
  - Malaise [Unknown]
  - Asthenia [Unknown]
  - Vitamin D decreased [Unknown]
  - Vitamin C decreased [Unknown]
  - Fall [Unknown]
